FAERS Safety Report 15962173 (Version 1)
Quarter: 2019Q1

REPORT INFORMATION
  Report Type: Spontaneous
  Country: US (occurrence: US)
  Receive Date: 20190214
  Receipt Date: 20190214
  Transmission Date: 20190417
  Serious: Yes (Death, Other)
  Sender: FDA-Public Use
  Company Number: US-PFIZER INC-2019062990

PATIENT
  Age: 68 Year
  Sex: Male

DRUGS (7)
  1. VP-16 [Concomitant]
     Active Substance: ETOPOSIDE
     Indication: SMALL CELL LUNG CANCER
     Dosage: 50 MG/M2, UNK (DAILY FOR FIVE DAYS)
     Dates: start: 197904
  2. CYCLOPHOSPHAMIDE. [Concomitant]
     Active Substance: CYCLOPHOSPHAMIDE
     Indication: SMALL CELL LUNG CANCER
     Dosage: 1000 MG/M2, UNK (ON DAY 22)
     Route: 042
     Dates: start: 197904
  3. CYCLOPHOSPHAMIDE. [Concomitant]
     Active Substance: CYCLOPHOSPHAMIDE
     Dosage: UNK (CONSOLIDATION THERAPY)
     Dates: start: 1979
  4. METHOTREXATE. [Concomitant]
     Active Substance: METHOTREXATE
     Indication: SMALL CELL LUNG CANCER
     Dosage: 60 MG/M2, UNK (ON DAY 1)
     Dates: start: 197904
  5. VP-16 [Concomitant]
     Active Substance: ETOPOSIDE
     Dosage: UNK (CONSOLIDATION THERAPY)
     Dates: start: 1979
  6. ADRIAMYCIN [Concomitant]
     Active Substance: DOXORUBICIN HYDROCHLORIDE
     Indication: SMALL CELL LUNG CANCER
     Dosage: 60 MG/M2, UNK (ON DAY 22)
     Route: 042
     Dates: start: 197904
  7. VINCRISTINE SULFATE. [Suspect]
     Active Substance: VINCRISTINE SULFATE
     Dosage: 2 MG, WEEKLY (FOR A TOTAL OF SIX DOSES)
     Route: 042
     Dates: start: 197904, end: 1980

REACTIONS (1)
  - Neuropathy peripheral [Unknown]
